FAERS Safety Report 23888633 (Version 1)
Quarter: 2024Q2

REPORT INFORMATION
  Report Type: Spontaneous
  Country: US (occurrence: None)
  Receive Date: 20240522
  Receipt Date: 20240522
  Transmission Date: 20240716
  Serious: Yes (Death)
  Sender: FDA-Public Use
  Company Number: None

PATIENT
  Age: 68 Year
  Sex: Female
  Weight: 57.2 kg

DRUGS (9)
  1. MOUNJARO [Suspect]
     Active Substance: TIRZEPATIDE
     Indication: Weight decreased
     Route: 030
     Dates: start: 20231030, end: 20231230
  2. CPAP [Concomitant]
  3. METFORMIN [Concomitant]
     Active Substance: METFORMIN HYDROCHLORIDE
  4. Sulfamethozaxole/trimethoprim [Concomitant]
  5. Diclofenac sodiulm [Concomitant]
  6. LISINOPRIL [Concomitant]
     Active Substance: LISINOPRIL
  7. ROSUVASTATIN [Concomitant]
     Active Substance: ROSUVASTATIN
  8. DULOXETINE [Concomitant]
     Active Substance: DULOXETINE
  9. CIPROFLOXACIN [Concomitant]
     Active Substance: CIPROFLOXACIN

REACTIONS (2)
  - Myocardial infarction [None]
  - Cardiovascular disorder [None]

NARRATIVE: CASE EVENT DATE: 20231230
